FAERS Safety Report 14707698 (Version 1)
Quarter: 2018Q2

REPORT INFORMATION
  Report Type: Spontaneous
  Country: DE (occurrence: DE)
  Receive Date: 20180403
  Receipt Date: 20180403
  Transmission Date: 20180711
  Serious: Yes (Other)
  Sender: FDA-Public Use
  Company Number: DE-TORRENT-00007996

PATIENT
  Sex: Female

DRUGS (2)
  1. QUENTIAX [Suspect]
     Active Substance: QUETIAPINE FUMARATE
     Indication: PRODUCT USED FOR UNKNOWN INDICATION
     Dosage: 7500 MG, SINGLE DOSE
     Route: 048
     Dates: start: 20180101, end: 20180101
  2. QUETIAPIN [Suspect]
     Active Substance: QUETIAPINE
     Indication: PRODUCT USED FOR UNKNOWN INDICATION
     Dosage: 5000 MG, SINGLE DOSE
     Route: 048
     Dates: start: 20180101, end: 20180101

REACTIONS (4)
  - Gait disturbance [Unknown]
  - Intentional overdose [Unknown]
  - Exposure during pregnancy [Unknown]
  - Suicide attempt [Unknown]

NARRATIVE: CASE EVENT DATE: 20180101
